FAERS Safety Report 25713267 (Version 1)
Quarter: 2025Q3

REPORT INFORMATION
  Report Type: Spontaneous
  Country: US (occurrence: US)
  Receive Date: 20250822
  Receipt Date: 20250822
  Transmission Date: 20251020
  Serious: Yes (Disabling)
  Sender: ABBVIE
  Company Number: US-ABBVIE-6425534

PATIENT
  Sex: Female

DRUGS (1)
  1. SYNTHROID [Suspect]
     Active Substance: LEVOTHYROXINE SODIUM
     Indication: Hypothyroidism
     Route: 048

REACTIONS (10)
  - Disability [Unknown]
  - Tachycardia [Unknown]
  - Fatigue [Unknown]
  - Depression [Unknown]
  - Anxiety [Unknown]
  - Drug ineffective [Unknown]
  - Nail cuticle fissure [Unknown]
  - Blood thyroid stimulating hormone abnormal [Unknown]
  - Emotional distress [Unknown]
  - Weight increased [Unknown]
